FAERS Safety Report 12505746 (Version 1)
Quarter: 2016Q2

REPORT INFORMATION
  Report Type: Spontaneous
  Country: US (occurrence: US)
  Receive Date: 20160628
  Receipt Date: 20160628
  Transmission Date: 20160815
  Serious: Yes (Hospitalization, Other)
  Sender: FDA-Public Use
  Company Number: US-BAYER-2016-120159

PATIENT
  Age: 54 Year
  Sex: Male

DRUGS (1)
  1. PRAZIQUANTEL [Suspect]
     Active Substance: PRAZIQUANTEL
     Indication: SCHISTOSOMIASIS
     Dosage: UNK
     Dates: start: 2012, end: 2012

REACTIONS (16)
  - Schistosomiasis [None]
  - Hyperhidrosis [None]
  - Dizziness [None]
  - Shock haemorrhagic [None]
  - Varicose vein [None]
  - Drug ineffective [None]
  - Chest pain [None]
  - Portal hypertension [None]
  - Splenomegaly [None]
  - Ascites [None]
  - Portal fibrosis [None]
  - Abdominal distension [None]
  - Hepatic cirrhosis [None]
  - Oesophageal varices haemorrhage [None]
  - Haematemesis [None]
  - Haemoglobin decreased [None]
